FAERS Safety Report 4316160-7 (Version None)
Quarter: 2004Q1

REPORT INFORMATION
  Report Type: 
  Country: None (occurrence: None)
  Receive Date: 20040311
  Receipt Date: 20040311
  Transmission Date: 20041129
  Serious: Yes (Other)
  Sender: FDA-Public Use
  Company Number: None

PATIENT

DRUGS (1)
  1. REMBRANDT 2 HOUR TOOTH WHITENING SYSTEM [Suspect]

REACTIONS (2)
  - GINGIVAL DISORDER [None]
  - THERMAL BURN [None]
